FAERS Safety Report 13234630 (Version 2)
Quarter: 2017Q1

REPORT INFORMATION
  Report Type: Spontaneous
  Country: AU (occurrence: AU)
  Receive Date: 20170215
  Receipt Date: 20170330
  Transmission Date: 20170428
  Serious: Yes (Hospitalization, Other)
  Sender: FDA-Public Use
  Company Number: AU-IGSA-IG005086

PATIENT
  Age: 71 Year
  Sex: Male

DRUGS (24)
  1. FLEBOGAMMA DIF [Suspect]
     Active Substance: HUMAN IMMUNOGLOBULIN G
     Indication: INCLUSION BODY MYOSITIS
     Route: 042
     Dates: start: 20160201
  2. COLOXYL C SENNA [Concomitant]
  3. ISOSORBIDE MONONITRATE. [Concomitant]
     Active Substance: ISOSORBIDE MONONITRATE
  4. EZETIMIBE. [Concomitant]
     Active Substance: EZETIMIBE
  5. PARACETAMOL [Concomitant]
     Active Substance: ACETAMINOPHEN
  6. LEFLUNOMIDE. [Concomitant]
     Active Substance: LEFLUNOMIDE
  7. ESOMEPRAZOLE [Concomitant]
     Active Substance: ESOMEPRAZOLE
  8. MULTIVITAMIN /07504101/ [Concomitant]
     Active Substance: VITAMINS
  9. FLEBOGAMMA DIF [Suspect]
     Active Substance: HUMAN IMMUNOGLOBULIN G
     Indication: INCLUSION BODY MYOSITIS
     Route: 042
     Dates: start: 20160201
  10. PREDNISOLONE. [Concomitant]
     Active Substance: PREDNISOLONE
  11. BACTRIM [Concomitant]
     Active Substance: SULFAMETHOXAZOLE\TRIMETHOPRIM
  12. FLEBOGAMMA DIF [Suspect]
     Active Substance: HUMAN IMMUNOGLOBULIN G
     Indication: INCLUSION BODY MYOSITIS
     Route: 042
     Dates: start: 20160201
  13. CLOPIDOGREL [Concomitant]
     Active Substance: CLOPIDOGREL BISULFATE
  14. FLUTICASONE W/SALMETEROL [Concomitant]
     Active Substance: FLUTICASONE PROPIONATE\SALMETEROL XINAFOATE
  15. SALBUTAMOL [Concomitant]
     Active Substance: ALBUTEROL
  16. CHOLESTYRAMINE. [Concomitant]
     Active Substance: CHOLESTYRAMINE
     Indication: DRUG DETOXIFICATION
     Dates: start: 20161208, end: 20161219
  17. FLEBOGAMMA DIF [Suspect]
     Active Substance: HUMAN IMMUNOGLOBULIN G
     Indication: INCLUSION BODY MYOSITIS
     Route: 042
     Dates: start: 20160201
  18. FLEBOGAMMA DIF [Suspect]
     Active Substance: HUMAN IMMUNOGLOBULIN G
     Indication: INCLUSION BODY MYOSITIS
     Route: 042
     Dates: start: 20160201
  19. FUROSEMIDE. [Concomitant]
     Active Substance: FUROSEMIDE
  20. PREGABALIN. [Concomitant]
     Active Substance: PREGABALIN
  21. METOPROLOL. [Concomitant]
     Active Substance: METOPROLOL
  22. GTN [Concomitant]
     Active Substance: NITROGLYCERIN
  23. FLEBOGAMMA DIF [Suspect]
     Active Substance: HUMAN IMMUNOGLOBULIN G
     Indication: INCLUSION BODY MYOSITIS
     Route: 042
     Dates: start: 20160201
  24. TELMISARTAN. [Concomitant]
     Active Substance: TELMISARTAN

REACTIONS (6)
  - Jaundice [Unknown]
  - Hepatitis C [Not Recovered/Not Resolved]
  - Liver function test abnormal [Unknown]
  - Malaise [Unknown]
  - Suspected transmission of an infectious agent via product [Not Recovered/Not Resolved]
  - Abdominal pain [Unknown]

NARRATIVE: CASE EVENT DATE: 20160913
